FAERS Safety Report 26209102 (Version 1)
Quarter: 2025Q4

REPORT INFORMATION
  Report Type: Spontaneous
  Country: CH (occurrence: CH)
  Receive Date: 20251229
  Receipt Date: 20251229
  Transmission Date: 20260117
  Serious: Yes (Life-Threatening, Hospitalization, Other)
  Sender: MERCK SHARP & DOHME LLC
  Company Number: None

PATIENT
  Age: 72 Year
  Sex: Male

DRUGS (14)
  1. ROCURONIUM BROMIDE [Suspect]
     Active Substance: ROCURONIUM BROMIDE
     Dosage: TIME INTERVAL: TOTAL: 290 MG
     Route: 065
     Dates: start: 20250723, end: 20250723
  2. SYMBICORT [Concomitant]
     Active Substance: BUDESONIDE\FORMOTEROL FUMARATE DIHYDRATE
     Route: 065
  3. INDERAL [Concomitant]
     Active Substance: PROPRANOLOL HYDROCHLORIDE
     Dosage: STRENGTH 40 MG
     Route: 065
  4. EPHEDRIN SINTETICA [Concomitant]
     Dosage: TIME INTERVAL: TOTAL: 60 MG
     Route: 065
     Dates: start: 20250723, end: 20250723
  5. TAMSULOSIN T MEPHA [Concomitant]
     Dosage: STRENGTH 0.4 MG
     Route: 065
  6. METFORMIN HYDROCHLORIDE\VILDAGLIPTIN [Concomitant]
     Active Substance: METFORMIN HYDROCHLORIDE\VILDAGLIPTIN
     Dosage: STRENGTH 1000 MG
     Route: 065
  7. BILASTINE [Concomitant]
     Active Substance: BILASTINE
     Dosage: STRENGTH 20 MG
     Route: 065
  8. ROSUVASTATIN CALCIUM [Concomitant]
     Active Substance: ROSUVASTATIN CALCIUM
     Dosage: STRENGTH 5 MG
     Route: 065
  9. JARDIANCE [Concomitant]
     Active Substance: EMPAGLIFLOZIN
     Dosage: STRENGTH 10 MG
     Route: 065
  10. METAMIZOLE [Suspect]
     Active Substance: METAMIZOLE
     Dosage: TIME INTERVAL: TOTAL: 2000 MG
     Route: 065
     Dates: start: 20250723, end: 20250723
  11. CALCIUMGLUCONAT B.BRAUN [Concomitant]
     Dosage: TIME INTERVAL: TOTAL: 6.75 MMOL
     Route: 065
     Dates: start: 20250723, end: 20250723
  12. GLICLAZIDE [Concomitant]
     Active Substance: GLICLAZIDE
     Dosage: STRENGTH 60 MG
     Route: 065
  13. ASPIRIN [Concomitant]
     Active Substance: ASPIRIN
     Dosage: STRENGTH 100 MG
     Route: 065
  14. DEXILANT [Concomitant]
     Active Substance: DEXLANSOPRAZOLE
     Dosage: STRENGTH 60 MG
     Route: 065

REACTIONS (1)
  - Hypersensitivity [Recovered/Resolved]

NARRATIVE: CASE EVENT DATE: 20250723
